FAERS Safety Report 6215184-2 (Version None)
Quarter: 2009Q2

REPORT INFORMATION
  Report Type: 
  Country: None (occurrence: None)
  Receive Date: 20090604
  Receipt Date: 20090522
  Transmission Date: 20091009
  Serious: Yes (Other)
  Sender: FDA-Public Use
  Company Number: ES-JNJCH-2009014677

PATIENT
  Age: 42 Year
  Sex: Female

DRUGS (1)
  1. DIPHENHYDRAMINE HCL [Suspect]
     Indication: ALLERGY TEST
     Dosage: TEXT:25 MG ONCE
     Route: 048

REACTIONS (3)
  - CONJUNCTIVITIS [None]
  - COUGH [None]
  - URTICARIA [None]
